FAERS Safety Report 13283205 (Version 1)
Quarter: 2017Q1

REPORT INFORMATION
  Report Type: Spontaneous
  Country: US (occurrence: US)
  Receive Date: 20170301
  Receipt Date: 20170301
  Transmission Date: 20170428
  Serious: No
  Sender: FDA-Public Use
  Company Number: US-ABBVIE-16K-163-1681454-00

PATIENT
  Sex: Male

DRUGS (2)
  1. ANDRODERM [Suspect]
     Active Substance: TESTOSTERONE
     Indication: PRODUCT USED FOR UNKNOWN INDICATION
     Route: 061
     Dates: start: 2016, end: 201606
  2. ANDROGEL [Suspect]
     Active Substance: TESTOSTERONE
     Indication: ERECTILE DYSFUNCTION
     Route: 061
     Dates: start: 201604

REACTIONS (4)
  - Erection increased [Not Recovered/Not Resolved]
  - Rash [Not Recovered/Not Resolved]
  - Spontaneous penile erection [Not Recovered/Not Resolved]
  - Pain [Not Recovered/Not Resolved]
